FAERS Safety Report 17734101 (Version 1)
Quarter: 2020Q2

REPORT INFORMATION
  Report Type: Report from Study
  Country: KR (occurrence: KR)
  Receive Date: 20200501
  Receipt Date: 20200501
  Transmission Date: 20200714
  Serious: Yes (Hospitalization)
  Sender: FDA-Public Use
  Company Number: KR-JNJFOC-20200438560

PATIENT
  Age: 74 Year
  Sex: Male
  Weight: 65 kg

DRUGS (20)
  1. RIVAROXABAN [Suspect]
     Active Substance: RIVAROXABAN
     Indication: THROMBOSIS PROPHYLAXIS
  2. CONBLOC [Concomitant]
     Dosage: 40 MG, QD
     Route: 048
     Dates: start: 201801, end: 20190721
  3. SIGMART [Concomitant]
     Active Substance: NICORANDIL
     Dosage: 10 MG, QD
     Route: 048
     Dates: start: 20140527
  4. LIXIANA [Concomitant]
     Active Substance: EDOXABAN TOSYLATE
     Dosage: 30 MG, QD
     Route: 048
     Dates: start: 20200202
  5. TENELIA [Concomitant]
     Active Substance: TENELIGLIPTIN
     Dosage: 20 MG, QD
     Route: 048
  6. ALDACTONE [Concomitant]
     Active Substance: SPIRONOLACTONE
     Dosage: 6.25 MG, QD
     Route: 048
  7. FUROSEMIDE. [Concomitant]
     Active Substance: FUROSEMIDE
     Dosage: 40 MG, QD
     Route: 048
     Dates: end: 20191006
  8. CALCIUM ACETATE. [Concomitant]
     Active Substance: CALCIUM ACETATE
     Dosage: 1420 MG, QD
     Route: 048
  9. FEROBA YOU [Concomitant]
     Dosage: 512 MG, QD
     Route: 048
  10. DIOVAN [Concomitant]
     Active Substance: VALSARTAN
     Dosage: 40 MG, QD
     Route: 048
     Dates: start: 2009, end: 20190721
  11. CRESTOR [Concomitant]
     Active Substance: ROSUVASTATIN CALCIUM
     Dosage: 20 MG, QD
     Route: 048
     Dates: start: 201801
  12. DIAMICRON MR [Concomitant]
     Active Substance: GLICLAZIDE
     Dosage: 60 MG, QD
     Route: 048
     Dates: start: 20190610
  13. RIVAROXABAN [Suspect]
     Active Substance: RIVAROXABAN
     Indication: CEREBROVASCULAR ACCIDENT PROPHYLAXIS
  14. ISOKET [Concomitant]
     Active Substance: ISOSORBIDE DINITRATE
     Dosage: 80 MG, QD
     Route: 048
     Dates: start: 20180409
  15. ENTRESTO [Concomitant]
     Active Substance: SACUBITRIL\VALSARTAN
     Dosage: 100 MG, QD
     Route: 048
     Dates: start: 20200120
  16. TASNA [Concomitant]
     Dosage: 100 MG, QD
     Route: 048
     Dates: start: 20190610
  17. LACTULOSE. [Concomitant]
     Active Substance: LACTULOSE
     Dosage: 2 DF, QD
     Route: 048
     Dates: end: 20190811
  18. RIVAROXABAN [Suspect]
     Active Substance: RIVAROXABAN
     Indication: ATRIAL FIBRILLATION
     Route: 048
     Dates: start: 20190408, end: 20200128
  19. ASPIRIN. [Concomitant]
     Active Substance: ASPIRIN
     Dosage: 100 MG, QD
     Route: 048
     Dates: end: 20190407
  20. LASIX [Concomitant]
     Active Substance: FUROSEMIDE
     Dosage: 40 MG, QD
     Route: 048
     Dates: start: 20191007

REACTIONS (1)
  - Colitis ulcerative [Recovered/Resolved]

NARRATIVE: CASE EVENT DATE: 20200129
